FAERS Safety Report 13160241 (Version 4)
Quarter: 2017Q2

REPORT INFORMATION
  Report Type: Spontaneous
  Country: US (occurrence: US)
  Receive Date: 20170127
  Receipt Date: 20170412
  Transmission Date: 20170830
  Serious: Yes (Other)
  Sender: FDA-Public Use
  Company Number: US-IMPAX LABORATORIES, INC-2017-IPXL-00133

PATIENT
  Age: 74 Year
  Sex: Female
  Weight: 67 kg

DRUGS (18)
  1. RYTARY [Suspect]
     Active Substance: CARBIDOPA\LEVODOPA
     Dosage: 23.75/95 MG, 1 CAPSULE IN THE MORNING AND 1 CAPSULE AT NIGHT FOR 5 DAYS
     Route: 048
     Dates: start: 201612, end: 201612
  2. RYTARY [Suspect]
     Active Substance: CARBIDOPA\LEVODOPA
     Dosage: 48.75/195 MG 1 CAPSULE, AT 10 AM, 3 PM, 8 PM
     Route: 048
     Dates: start: 201612
  3. INSULIN [Concomitant]
     Active Substance: INSULIN NOS
     Indication: DIABETES MELLITUS
     Dosage: UNK
     Route: 065
  4. NATEGLINIDE. [Concomitant]
     Active Substance: NATEGLINIDE
     Dosage: 120 MG, UNK
     Route: 065
  5. VITAMIN D [Concomitant]
     Active Substance: CHOLECALCIFEROL
     Indication: PRODUCT USED FOR UNKNOWN INDICATION
     Dosage: UNK
     Route: 065
  6. RYTARY [Suspect]
     Active Substance: CARBIDOPA\LEVODOPA
     Dosage: 23.75/95 MG, 1 CAPSULE AT 10 AM, 1 CAPSULE AT 3 PM, AND 1 CAPSULE AT 8 PM FOR 5 DAYS
     Route: 048
     Dates: start: 201701, end: 201701
  7. NORTRIPTYLINE [Concomitant]
     Active Substance: NORTRIPTYLINE
     Indication: SLEEP DISORDER
     Dosage: 10 MG, 2 AT BEDTIME
     Route: 065
  8. PLEGRIDY [Concomitant]
     Active Substance: PEGINTERFERON BETA-1A
     Indication: MULTIPLE SCLEROSIS
     Dosage: UNK
     Route: 065
  9. RYTARY [Suspect]
     Active Substance: CARBIDOPA\LEVODOPA
     Indication: PARKINSON^S DISEASE
     Dosage: 23.75/95 MG, 1 CAPSULE ONCE A DAY FOR 5 DAYS
     Route: 048
     Dates: start: 20161221, end: 201612
  10. RYTARY [Suspect]
     Active Substance: CARBIDOPA\LEVODOPA
     Dosage: 23.75/95 MG, 1 CAPSULE (IN MORNING, AT 10 AM, AT 3 PM, AT 5 PM, AT NIGHT)
     Route: 048
     Dates: start: 201701, end: 20170119
  11. MULTIVITAMIN [Concomitant]
     Active Substance: VITAMINS
     Indication: PRODUCT USED FOR UNKNOWN INDICATION
     Dosage: UNK
     Route: 065
  12. HUMULIN N [Concomitant]
     Active Substance: INSULIN HUMAN
     Indication: DIABETES MELLITUS
     Dosage: UNK
     Route: 065
  13. RYTARY [Suspect]
     Active Substance: CARBIDOPA\LEVODOPA
     Dosage: 23.75/95 MG, 2 CAPSULES, 3 /DAY
     Route: 048
     Dates: start: 201701
  14. NATEGLINIDE. [Concomitant]
     Active Substance: NATEGLINIDE
     Indication: DIABETES MELLITUS
     Dosage: 140 MG, 3 /DAY BEFORE EACH MEAL
     Route: 065
  15. RYTARY [Suspect]
     Active Substance: CARBIDOPA\LEVODOPA
     Dosage: 23.75/95 MG, 2 CAPSULES AT 10 AM, 2 CAPSULES AT 3 PM AND 1 CAPSULE AT 8 PM FOR 5 DAYS
     Route: 048
     Dates: start: 201701, end: 201701
  16. CEPHALEXIN. [Concomitant]
     Active Substance: CEPHALEXIN
     Indication: PROPHYLAXIS URINARY TRACT INFECTION
     Dosage: 250 MG, UNK
     Route: 065
  17. JANUVIA [Concomitant]
     Active Substance: SITAGLIPTIN PHOSPHATE
     Indication: DIABETES MELLITUS
     Dosage: 100 MG ONE, 1 /DAY
     Route: 065
  18. RYTARY [Suspect]
     Active Substance: CARBIDOPA\LEVODOPA
     Dosage: 23.75/95 MG, 2 CAPSULES AT 10 AM, 1 CAPSULE AT 3 PM AND 1 CAPSULE AT 8 PM FOR 5 DAYS
     Route: 048
     Dates: start: 201701, end: 201701

REACTIONS (4)
  - Loss of consciousness [Unknown]
  - Orthostatic hypotension [Recovered/Resolved]
  - Fall [Unknown]
  - Incoherent [Recovered/Resolved]

NARRATIVE: CASE EVENT DATE: 20170109
